FAERS Safety Report 7162881 (Version 12)
Quarter: 2016Q4

REPORT INFORMATION
  Report Type: Spontaneous
  Country: US (occurrence: US)
  Receive Date: 20091030
  Receipt Date: 20161011
  Transmission Date: 20170207
  Serious: Yes (Life-Threatening, Hospitalization, Disabling)
  Sender: FDA-Public Use
  Company Number: US-BAYER-200937025NA

PATIENT
  Age: 45 Year
  Sex: Female
  Weight: 77 kg

DRUGS (47)
  1. PROTONIX [Concomitant]
     Active Substance: PANTOPRAZOLE SODIUM
     Indication: GASTRITIS
  2. MELOXICAM. [Concomitant]
     Active Substance: MELOXICAM
     Indication: BACK PAIN
  3. BACTRIM [Concomitant]
     Active Substance: SULFAMETHOXAZOLE\TRIMETHOPRIM
     Indication: URINARY TRACT INFECTION
     Route: 065
  4. HYDROCODONE W/ACETAMINOPHEN [Concomitant]
     Active Substance: ACETAMINOPHEN\HYDROCODONE BITARTRATE
     Indication: PAIN
  5. AMBIEN [Concomitant]
     Active Substance: ZOLPIDEM TARTRATE
     Route: 065
  6. NASONEX [Concomitant]
     Active Substance: MOMETASONE FUROATE
     Dosage: PHARMACY RECORDS: 2007, DEC-2008
     Route: 065
  7. ESOMEPRAZOLE [Concomitant]
     Active Substance: ESOMEPRAZOLE
     Route: 042
  8. CIPROFLOXACIN. [Concomitant]
     Active Substance: CIPROFLOXACIN
     Dosage: 500 MG, BID FOR 8 DAYS
     Route: 048
  9. SYNTHROID [Concomitant]
     Active Substance: LEVOTHYROXINE SODIUM
     Indication: THYROID DISORDER
     Dosage: USED LEVOKYL OR SYNTHROID
     Route: 065
     Dates: start: 1992, end: 20100615
  10. SYNTHROID [Concomitant]
     Active Substance: LEVOTHYROXINE SODIUM
     Indication: GOITRE
  11. GOLYTELY [MACROGOL,KCL,NA BICARB,NACL,NA+ SULF] [Concomitant]
  12. YASMIN [Suspect]
     Active Substance: DROSPIRENONE\ETHINYL ESTRADIOL
     Indication: ORAL CONTRACEPTION
     Dosage: UNK
     Route: 048
     Dates: start: 2002, end: 2008
  13. PROTONIX [Concomitant]
     Active Substance: PANTOPRAZOLE SODIUM
     Indication: GASTROOESOPHAGEAL REFLUX DISEASE
     Dosage: UNK, UNK
     Route: 065
     Dates: start: 20081208
  14. LORAZEPAM. [Concomitant]
     Active Substance: LORAZEPAM
     Indication: ANXIETY
  15. MIRALAX [Concomitant]
     Active Substance: POLYETHYLENE GLYCOL 3350
     Indication: LAXATIVE SUPPORTIVE CARE
     Route: 065
  16. ZOLOFT [Concomitant]
     Active Substance: SERTRALINE HYDROCHLORIDE
     Route: 065
  17. FLEXERIL [Concomitant]
     Active Substance: CYCLOBENZAPRINE HYDROCHLORIDE
     Dosage: PHARMACY RECORDS: DEC-2008
     Route: 065
  18. SERTRALINE HYDROCHLORIDE. [Concomitant]
     Active Substance: SERTRALINE HYDROCHLORIDE
     Dosage: PHARMACY RECORDS: JAN-2009
     Route: 065
  19. PENICILLIN VK [Concomitant]
     Active Substance: PENICILLIN V POTASSIUM
     Route: 065
  20. WARFARIN [Concomitant]
     Active Substance: WARFARIN
     Route: 065
     Dates: start: 20081227
  21. SPIRONOLACTONE. [Concomitant]
     Active Substance: SPIRONOLACTONE
     Indication: UNEVALUABLE EVENT
     Dosage: UNK, UNK
     Route: 065
     Dates: start: 2004, end: 2008
  22. CELEBREX [Concomitant]
     Active Substance: CELECOXIB
  23. YASMIN [Suspect]
     Active Substance: DROSPIRENONE\ETHINYL ESTRADIOL
     Indication: ACNE
  24. ADVIL [Concomitant]
     Active Substance: IBUPROFEN
     Dates: start: 1999, end: 2008
  25. RESTASIS [Concomitant]
     Active Substance: CYCLOSPORINE
     Indication: LACRIMATION DISORDER
     Route: 065
     Dates: start: 20080730
  26. CYCLOBENZAPRINE [Concomitant]
     Active Substance: CYCLOBENZAPRINE
     Indication: BACK PAIN
     Dosage: 10 MG, TID, AS NEEDED
     Dates: start: 20081120
  27. DILAUDID [Concomitant]
     Active Substance: HYDROMORPHONE HYDROCHLORIDE
     Indication: PAIN
     Route: 065
  28. PERCOCET [Concomitant]
     Active Substance: ACETAMINOPHEN\OXYCODONE HYDROCHLORIDE
     Indication: PAIN
     Route: 065
  29. MOBIC [Concomitant]
     Active Substance: MELOXICAM
     Dosage: PHARMACY RECORDS: DEC-2008
     Route: 065
  30. WELLBUTRIN [Concomitant]
     Active Substance: BUPROPION HYDROCHLORIDE
     Dosage: PHARMACY RECORDS: DEC-2008
     Route: 065
  31. LEVOXYL [Concomitant]
     Active Substance: LEVOTHYROXINE SODIUM
     Indication: GOITRE
  32. WARFARIN [Concomitant]
     Active Substance: WARFARIN
     Dosage: DOSING 3 MG DAILY EXCEPT THURSDAYS
     Route: 065
     Dates: start: 20090129
  33. AMITIZA [Concomitant]
     Active Substance: LUBIPROSTONE
     Indication: IRRITABLE BOWEL SYNDROME
     Dosage: 24 MCG/24HR, QD
     Route: 065
     Dates: start: 20081205
  34. PENICILLIN V POTASSIUM. [Concomitant]
     Active Substance: PENICILLIN V POTASSIUM
     Indication: PHARYNGITIS STREPTOCOCCAL
     Dosage: UNK, UNK
     Route: 065
     Dates: start: 20081221
  35. ASPIRIN. [Concomitant]
     Active Substance: ASPIRIN
     Route: 065
  36. PROPOXYPHENE. [Concomitant]
     Active Substance: PROPOXYPHENE
     Dosage: PHARMACY RECORDS: DEC-2008
     Route: 065
     Dates: start: 20081219
  37. YASMIN [Suspect]
     Active Substance: DROSPIRENONE\ETHINYL ESTRADIOL
     Indication: PREMENSTRUAL SYNDROME
  38. YASMIN [Suspect]
     Active Substance: DROSPIRENONE\ETHINYL ESTRADIOL
     Indication: POLYCYSTIC OVARIES
  39. LEVOXYL [Concomitant]
     Active Substance: LEVOTHYROXINE SODIUM
     Indication: THYROID DISORDER
     Dosage: USED LEVOKYL OR SYNTHROID
     Route: 042
     Dates: start: 1992, end: 20100615
  40. MELOXICAM. [Concomitant]
     Active Substance: MELOXICAM
     Indication: INTERVERTEBRAL DISC PROTRUSION
     Dosage: PHARMACY RECORDS: DEC-2008
     Route: 065
     Dates: start: 20081120
  41. DURAGESIC [Concomitant]
     Active Substance: FENTANYL
     Indication: PAIN
     Route: 065
  42. COLACE [Concomitant]
     Active Substance: DOCUSATE SODIUM
     Indication: CONSTIPATION PROPHYLAXIS
     Route: 065
  43. SYNTHROID [Concomitant]
     Active Substance: LEVOTHYROXINE SODIUM
     Indication: HYPOTHYROIDISM
  44. SPIRONOLACTONE. [Concomitant]
     Active Substance: SPIRONOLACTONE
     Indication: UNEVALUABLE EVENT
     Dosage: TWO TABLETS PER DAY
     Route: 065
     Dates: start: 20081109
  45. MERIDIA [Concomitant]
     Active Substance: SIBUTRAMINE HYDROCHLORIDE
     Indication: WEIGHT DECREASED
     Dosage: 15 MG, QD
     Route: 065
     Dates: start: 200703, end: 2009
  46. LEXAPRO [Concomitant]
     Active Substance: ESCITALOPRAM OXALATE
     Dosage: PHARMACY RECORDS: DEC-2008
     Route: 065
  47. LIDOCAINE VISCOUS [Concomitant]
     Active Substance: LIDOCAINE HYDROCHLORIDE
     Dosage: MIX ONE-HALF TEASPOON IN WATER, SWISH AND SPIT OUT EVERY 4 HOURS PRN

REACTIONS (43)
  - Impaired driving ability [Not Recovered/Not Resolved]
  - Pain [Not Recovered/Not Resolved]
  - Tension [Unknown]
  - Agitation [Unknown]
  - Pulmonary embolism [Unknown]
  - Pain [Unknown]
  - Affective disorder [Unknown]
  - Affect lability [Unknown]
  - Peripheral venous disease [Recovered/Resolved]
  - Pain in extremity [Recovered/Resolved]
  - Mobility decreased [Recovered/Resolved]
  - Mobility decreased [Not Recovered/Not Resolved]
  - Swelling [Not Recovered/Not Resolved]
  - Skin turgor decreased [Not Recovered/Not Resolved]
  - Pelvic haematoma [Recovered/Resolved]
  - Vaginal haemorrhage [None]
  - Skin discolouration [Recovered/Resolved]
  - Varicose vein [Recovered/Resolved]
  - Skin warm [Not Recovered/Not Resolved]
  - Platelet count decreased [Recovering/Resolving]
  - International normalised ratio abnormal [None]
  - Venous valve ruptured [None]
  - Thrombosis [Unknown]
  - Conversion disorder [Unknown]
  - Depressed mood [Unknown]
  - Retroperitoneal haemorrhage [Unknown]
  - Deep vein thrombosis [Recovered/Resolved]
  - Post thrombotic syndrome [Not Recovered/Not Resolved]
  - Skin atrophy [Not Recovered/Not Resolved]
  - Disseminated intravascular coagulation [Recovering/Resolving]
  - Dehydration [Recovering/Resolving]
  - Pleural effusion [Recovering/Resolving]
  - Postoperative ileus [Unknown]
  - Confusional state [Unknown]
  - Emotional distress [Unknown]
  - Hyperlipidaemia [None]
  - Anxiety [Unknown]
  - Tearfulness [Unknown]
  - Inappropriate affect [Unknown]
  - Cholecystitis [None]
  - Gastrooesophageal reflux disease [None]
  - Fear [Unknown]
  - Cardiovascular insufficiency [None]

NARRATIVE: CASE EVENT DATE: 200812
